FAERS Safety Report 4482348-8 (Version None)
Quarter: 2004Q3

REPORT INFORMATION
  Report Type: 
  Country: None (occurrence: None)
  Receive Date: 20040921
  Receipt Date: 20040512
  Transmission Date: 20050211
  Serious: Yes (Hospitalization)
  Sender: FDA-Public Use
  Company Number: 163-20785-04050361

PATIENT
  Age: 57 Year
  Sex: Female

DRUGS (17)
  1. THALOMID [Suspect]
     Indication: MULTIPLE MYELOMA
     Dosage: 400 MG DAILY ORAL
     Route: 048
     Dates: start: 20040220, end: 20040302
  2. DEXAMETHASONE [Suspect]
     Indication: MULTIPLE MYELOMA
     Dosage: 40 MG DAILY ORAL
     Route: 048
     Dates: start: 20040309, end: 20040309
  3. CYCLOPHOSPHAMIDE [Suspect]
     Indication: MULTIPLE MYELOMA
     Dosage: 590 MG DAILY INTRAVENOUS
     Route: 042
     Dates: start: 20040306, end: 20040309
  4. ETOPOSIDE [Suspect]
     Indication: MULTIPLE MYELOMA
     Dosage: 59 MG DAILY INTRAVENOUS
     Route: 042
     Dates: start: 20040306, end: 20040309
  5. CISPLATIN [Suspect]
     Indication: MULTIPLE MYELOMA
     Dosage: 23 MG DAILY INTRAVENOUS
     Route: 042
     Dates: start: 20040306, end: 20040309
  6. PROCRIT [Concomitant]
  7. SENOKOT [Concomitant]
  8. ACYCLOVIR [Concomitant]
  9. LOVENOX [Concomitant]
  10. OXYCODONE(OXYCODONE) [Concomitant]
  11. FOLIC ACID [Concomitant]
  12. MULTIVITAMIN [Concomitant]
  13. HEPARIN [Concomitant]
  14. ZANTAC (RANITIDINE HDYROCHLORIDE) [Concomitant]
  15. CALCIUM CARBONATE (CALCIUM CARBONATE) [Concomitant]
  16. MAGNESIUM OXIDE (MAGNESIUM OXIDE) [Concomitant]
  17. K-DUR 10 [Concomitant]

REACTIONS (15)
  - BLOOD CALCIUM DECREASED [None]
  - BLOOD SODIUM DECREASED [None]
  - C-REACTIVE PROTEIN INCREASED [None]
  - CATHETER RELATED COMPLICATION [None]
  - DEEP VEIN THROMBOSIS [None]
  - DYSPNOEA [None]
  - HAEMATOCRIT DECREASED [None]
  - HAEMOGLOBIN DECREASED [None]
  - LABORATORY TEST ABNORMAL [None]
  - MEDICAL DEVICE COMPLICATION [None]
  - NEUTROPENIA [None]
  - PROTHROMBIN TIME PROLONGED [None]
  - PULMONARY EMBOLISM [None]
  - PYREXIA [None]
  - WHITE BLOOD CELL COUNT INCREASED [None]
